FAERS Safety Report 12436015 (Version 5)
Quarter: 2016Q3

REPORT INFORMATION
  Report Type: Report from Study
  Country: IL (occurrence: IL)
  Receive Date: 20160604
  Receipt Date: 20160810
  Transmission Date: 20161109
  Serious: Yes (Other)
  Sender: FDA-Public Use
  Company Number: IL-ABBVIE-16K-082-1626781-00

PATIENT
  Age: 32 Year
  Sex: Female

DRUGS (2)
  1. HUMIRA [Suspect]
     Active Substance: ADALIMUMAB
     Indication: PSORIATIC ARTHROPATHY
     Route: 058
     Dates: start: 20160110, end: 20160802
  2. FOLIC ACID. [Concomitant]
     Active Substance: FOLIC ACID
     Indication: PRODUCT USED FOR UNKNOWN INDICATION
     Dates: start: 20160516

REACTIONS (12)
  - Eye inflammation [Not Recovered/Not Resolved]
  - Abortion spontaneous [Unknown]
  - Skin lesion [Unknown]
  - Foetal death [Unknown]
  - Haemorrhage in pregnancy [Unknown]
  - Arthralgia [Not Recovered/Not Resolved]
  - Joint effusion [Unknown]
  - Blood test abnormal [Not Recovered/Not Resolved]
  - Oedema peripheral [Not Recovered/Not Resolved]
  - Exposure during pregnancy [Unknown]
  - Oedema peripheral [Unknown]
  - Psoriasis [Not Recovered/Not Resolved]

NARRATIVE: CASE EVENT DATE: 2016
